FAERS Safety Report 6306112-X (Version None)
Quarter: 2009Q3

REPORT INFORMATION
  Report Type: 
  Country: None (occurrence: None)
  Receive Date: 20090810
  Receipt Date: 20090729
  Transmission Date: 20100115
  Serious: Yes (Death, Other)
  Sender: FDA-Public Use
  Company Number: 08US002837

PATIENT
  Age: 4 Month
  Sex: Male

DRUGS (2)
  1. PEDIA COUGH DECONG DROPS 487 [Suspect]
     Indication: NASOPHARYNGITIS
     Dosage: 0.8 ML, TID, ORAL
     Route: 048
     Dates: start: 20011004, end: 20011008
  2. PEDIACARE COUGH-COLD(CHLORPHENAMINE MALEATE, DEXTROMETHORPHAN HYDROBRO [Suspect]
     Indication: NASOPHARYNGITIS
     Dosage: ORAL
     Route: 048
     Dates: start: 20011004, end: 20011008

REACTIONS (1)
  - DRUG TOXICITY [None]
